FAERS Safety Report 25983335 (Version 3)
Quarter: 2025Q4

REPORT INFORMATION
  Report Type: Spontaneous
  Country: US (occurrence: US)
  Receive Date: 20251031
  Receipt Date: 20251227
  Transmission Date: 20260118
  Serious: No
  Sender: LUPIN
  Company Number: US-LUPIN PHARMACEUTICALS INC.-2025-09743

PATIENT
  Age: 69 Year
  Weight: 88.435 kg

DRUGS (1)
  1. BROMFENAC [Suspect]
     Active Substance: BROMFENAC
     Indication: Cataract operation
     Dosage: 4 DROP, QD   (03 WEEKS AGO)

REACTIONS (4)
  - Product use issue [Unknown]
  - Extra dose administered [Unknown]
  - Product dose omission issue [Unknown]
  - No adverse event [Unknown]
